FAERS Safety Report 18231017 (Version 1)
Quarter: 2020Q3

REPORT INFORMATION
  Report Type: Spontaneous
  Country: US (occurrence: US)
  Receive Date: 20200904
  Receipt Date: 20200904
  Transmission Date: 20201103
  Serious: Yes (Disabling, Other)
  Sender: FDA-Public Use
  Company Number: US-NOVEN PHARMACEUTICALS, INC.-2020US004903

PATIENT
  Age: 60 Year
  Sex: Female
  Weight: 48.98 kg

DRUGS (3)
  1. COMBIPATCH [Suspect]
     Active Substance: ESTRADIOL\NORETHINDRONE ACETATE
     Indication: PH BODY FLUID ABNORMAL
     Dosage: 0.05/0.14 MG, 1 PATCH 3?4 DAYS
     Route: 062
     Dates: start: 20200803, end: 20200821
  2. COMBIPATCH [Suspect]
     Active Substance: ESTRADIOL\NORETHINDRONE ACETATE
     Indication: OFF LABEL USE
  3. KLONOPIN [Concomitant]
     Active Substance: CLONAZEPAM
     Indication: PANIC ATTACK
     Dosage: 0.05 MG
     Route: 048

REACTIONS (9)
  - Vomiting [Recovered/Resolved]
  - Muscle strain [Unknown]
  - Breast tenderness [Unknown]
  - Off label use [Recovered/Resolved]
  - Impaired driving ability [Not Recovered/Not Resolved]
  - Dizziness [Recovering/Resolving]
  - Headache [Recovered/Resolved]
  - Feeling abnormal [Not Recovered/Not Resolved]
  - Vision blurred [Not Recovered/Not Resolved]

NARRATIVE: CASE EVENT DATE: 202008
